FAERS Safety Report 22013986 (Version 1)
Quarter: 2023Q1

REPORT INFORMATION
  Report Type: Spontaneous
  Country: CN (occurrence: None)
  Receive Date: 20230221
  Receipt Date: 20230221
  Transmission Date: 20230417
  Serious: Yes (Death)
  Sender: FDA-Public Use
  Company Number: CN-ROCHE-3285003

PATIENT
  Age: 64 Year
  Sex: Female
  Weight: 85 kg

DRUGS (18)
  1. HERCEPTIN [Suspect]
     Active Substance: TRASTUZUMAB
     Indication: Invasive breast carcinoma
     Route: 065
     Dates: start: 201812, end: 201912
  2. HERCEPTIN [Suspect]
     Active Substance: TRASTUZUMAB
     Route: 065
     Dates: start: 202009, end: 202103
  3. HERCEPTIN [Suspect]
     Active Substance: TRASTUZUMAB
     Route: 065
     Dates: start: 202103, end: 202104
  4. HERCEPTIN [Suspect]
     Active Substance: TRASTUZUMAB
     Route: 065
     Dates: start: 202104
  5. PERJETA [Suspect]
     Active Substance: PERTUZUMAB
     Indication: Invasive breast carcinoma
     Route: 065
     Dates: start: 202009, end: 202103
  6. PERJETA [Suspect]
     Active Substance: PERTUZUMAB
     Route: 065
     Dates: start: 202103, end: 202104
  7. PERJETA [Suspect]
     Active Substance: PERTUZUMAB
     Route: 065
     Dates: start: 202104
  8. KADCYLA [Suspect]
     Active Substance: ADO-TRASTUZUMAB EMTANSINE
     Indication: Invasive breast carcinoma
     Route: 065
     Dates: start: 202106
  9. DOCETAXEL [Concomitant]
     Active Substance: DOCETAXEL
     Indication: Invasive breast carcinoma
     Dosage: TCBH, 140MG
     Dates: start: 201811, end: 201904
  10. CARBOPLATIN [Concomitant]
     Active Substance: CARBOPLATIN
     Indication: Invasive breast carcinoma
     Dosage: TCBH, AUC 6
     Dates: start: 201811, end: 201904
  11. LETROZOLE [Concomitant]
     Active Substance: LETROZOLE
     Dates: start: 201905, end: 202004
  12. CAPECITABINE [Concomitant]
     Active Substance: CAPECITABINE
     Indication: Invasive breast carcinoma
     Dosage: 1.5G, DAY1-14, ONCE PER 21 DAYS
     Route: 048
     Dates: start: 202004, end: 202008
  13. PYROTINIB [Concomitant]
     Active Substance: PYROTINIB
     Indication: Invasive breast carcinoma
     Dosage: ONCE PER 21 DAYS
     Dates: start: 202004, end: 202008
  14. PACLITAXEL [Concomitant]
     Active Substance: PACLITAXEL
     Indication: Invasive breast carcinoma
     Dates: start: 202009, end: 202103
  15. VINORELBINE [Concomitant]
     Active Substance: VINORELBINE TARTRATE
     Indication: Invasive breast carcinoma
     Dates: start: 202103, end: 202104
  16. GEMCITABINE [Concomitant]
     Active Substance: GEMCITABINE
     Indication: Invasive breast carcinoma
     Dates: start: 202104, end: 202105
  17. CISPLATIN [Concomitant]
     Active Substance: CISPLATIN
     Indication: Invasive breast carcinoma
     Dates: start: 202202
  18. CATEQUENTINIB [Concomitant]
     Active Substance: CATEQUENTINIB
     Indication: Invasive breast carcinoma
     Dates: start: 202202

REACTIONS (2)
  - Disease progression [Unknown]
  - Pulmonary infarction [Fatal]
